FAERS Safety Report 10066284 (Version 1)
Quarter: 2014Q2

REPORT INFORMATION
  Report Type: Other
  Country: NL (occurrence: NL)
  Receive Date: 20140408
  Receipt Date: 20140408
  Transmission Date: 20141212
  Serious: Yes (Other)
  Sender: FDA-Public Use
  Company Number: NL-BRISTOL-MYERS SQUIBB COMPANY-20604450

PATIENT
  Age: 69 Year
  Sex: Female

DRUGS (3)
  1. METFORMIN HCL [Suspect]
     Indication: HYPERGLYCAEMIA
  2. NILOTINIB [Suspect]
     Indication: CHRONIC MYELOID LEUKAEMIA
     Dosage: 400MG 1/D
  3. LETROZOLE [Suspect]
     Indication: BREAST CANCER METASTATIC

REACTIONS (6)
  - Coronary artery stenosis [Unknown]
  - Cerebrovascular accident [Unknown]
  - Angina pectoris [Unknown]
  - Epilepsy [Unknown]
  - Aphasia [Unknown]
  - Intermittent claudication [Unknown]
